FAERS Safety Report 7790666-0 (Version None)
Quarter: 2011Q3

REPORT INFORMATION
  Report Type: 
  Country: None (occurrence: None)
  Receive Date: 20110930
  Receipt Date: 20110927
  Transmission Date: 20111222
  Serious: Yes (Other)
  Sender: FDA-Public Use
  Company Number: CA-PFIZER INC-2011196635

PATIENT
  Age: 70 Year
  Sex: Male

DRUGS (11)
  1. EZETIMIBE [Concomitant]
     Indication: BLOOD CHOLESTEROL
     Dosage: 10 MG, 1X/DAY
  2. LIPITOR [Concomitant]
     Indication: BLOOD CHOLESTEROL
     Dosage: 145 MG, 1X/DAY
  3. FLOMAX [Concomitant]
     Indication: PROSTATIC DISORDER
     Dosage: 0.4 MG, 1X/DAY
  4. XALATAN [Suspect]
     Indication: GLAUCOMA
     Dosage: 1 GTT, 1X/DAY IN BOTH EYES
     Route: 047
  5. METFORMIN [Concomitant]
     Indication: DIABETES MELLITUS
     Dosage: 500 MG, 2X/DAY
  6. PROSCAR [Concomitant]
     Indication: PROSTATIC DISORDER
     Dosage: 5 MG, 1X/DAY
  7. COD-LIVER OIL [Concomitant]
     Indication: BLOOD CHOLESTEROL
     Dosage: 1 DF, 1X/DAY
  8. PANTOPRAZOLE SODIUM [Concomitant]
     Indication: GASTRIC DISORDER
     Dosage: 40 MG, 1X/DAY
  9. AZARGA [Concomitant]
     Indication: INTRAOCULAR PRESSURE INCREASED
     Dosage: 1 GTT IN EACH EYE, 2X/DAY
  10. ASPIRIN [Concomitant]
     Indication: ANALGESIC THERAPY
     Dosage: 80 MG, 1X/DAY
  11. PROCAL [Concomitant]
     Indication: OSTEOPOROSIS
     Dosage: 400 UNITS, 1X/DAY

REACTIONS (2)
  - CATARACT OPERATION [None]
  - INTRAOCULAR PRESSURE FLUCTUATION [None]
